FAERS Safety Report 12751593 (Version 1)
Quarter: 2016Q3

REPORT INFORMATION
  Report Type: Spontaneous
  Country: FR (occurrence: FR)
  Receive Date: 20160915
  Receipt Date: 20160915
  Transmission Date: 20161109
  Serious: No
  Sender: FDA-Public Use
  Company Number: FR-JAZZ-2016-FR-000716

PATIENT

DRUGS (8)
  1. ERWINASE [Suspect]
     Active Substance: ASPARAGINASE ERWINIA CHRYSANTHEMI
     Indication: ACUTE LYMPHOCYTIC LEUKAEMIA RECURRENT
     Dosage: 25000 UNK, UNK
     Dates: start: 20150531, end: 20150531
  2. SPRYCEL [Concomitant]
     Active Substance: DASATINIB
     Indication: ACUTE LEUKAEMIA
  3. ERWINASE [Suspect]
     Active Substance: ASPARAGINASE ERWINIA CHRYSANTHEMI
     Dosage: 25000 UNK, UNK
     Dates: start: 20150604, end: 20150604
  4. SPRYCEL [Concomitant]
     Active Substance: DASATINIB
     Indication: ACUTE LYMPHOCYTIC LEUKAEMIA RECURRENT
     Dosage: 90 MG, QD
     Route: 048
     Dates: start: 20150526, end: 20151019
  5. ERWINASE [Suspect]
     Active Substance: ASPARAGINASE ERWINIA CHRYSANTHEMI
     Dosage: 25000 UNK, UNK
     Dates: start: 20150602, end: 20150602
  6. ERWINASE [Suspect]
     Active Substance: ASPARAGINASE ERWINIA CHRYSANTHEMI
     Dosage: 25000 UNK, UNK
     Dates: start: 20150606, end: 20150606
  7. ERWINASE [Suspect]
     Active Substance: ASPARAGINASE ERWINIA CHRYSANTHEMI
     Dosage: 25000 UNK, UNK
     Dates: start: 20150608, end: 20150608
  8. ERWINASE [Suspect]
     Active Substance: ASPARAGINASE ERWINIA CHRYSANTHEMI
     Dosage: 25000 IU, SINGLE
     Route: 042
     Dates: start: 20150705, end: 20150705

REACTIONS (3)
  - Pruritus [Recovered/Resolved]
  - Rash [Recovered/Resolved]
  - Tachycardia [Recovered/Resolved]

NARRATIVE: CASE EVENT DATE: 20150705
